FAERS Safety Report 8273075-X (Version None)
Quarter: 2012Q2

REPORT INFORMATION
  Report Type: 
  Country: None (occurrence: None)
  Receive Date: 20120411
  Receipt Date: 20120406
  Transmission Date: 20120825
  Serious: No
  Sender: FDA-Public Use
  Company Number: US-PFIZER INC-2012087492

PATIENT
  Sex: Male
  Weight: 137 kg

DRUGS (16)
  1. METFORMIN [Concomitant]
     Indication: DIABETES MELLITUS
     Dosage: 1000 MG, DAILY
  2. GLIMEPIRIDE [Concomitant]
     Indication: DIABETES MELLITUS
     Dosage: 4 MG, DAILY
  3. IRON [Concomitant]
     Dosage: UNKN, DAILY
  4. NAPROXEN (ALEVE) [Suspect]
     Indication: MUSCLE TIGHTNESS
  5. CRESTOR [Concomitant]
     Indication: BLOOD CHOLESTEROL ABNORMAL
     Dosage: 10 MG, DAILY
  6. TOPROL-XL [Concomitant]
     Dosage: 50 MG, DAILY
  7. ALPHA LIPOIC ACID [Concomitant]
     Dosage: 400 MG, DAILY
  8. DIOVAN [Concomitant]
     Indication: BLOOD PRESSURE ABNORMAL
     Dosage: UNK
  9. ACETYLSALICYLIC ACID SRT [Suspect]
     Indication: ROUTINE HEALTH MAINTENANCE
     Dosage: 81 MG, DAILY
     Dates: end: 20120406
  10. FLECTOR [Suspect]
     Indication: PAIN
     Dosage: UNK ,TWO TIMES A DAY
     Dates: start: 20120301, end: 20120406
  11. VITAMIN D [Concomitant]
     Indication: VITAMIN D
     Dosage: UNK, WEEKLY
  12. POTASSIUM CITRATE [Concomitant]
     Indication: BLOOD POTASSIUM DECREASED
  13. ACETYLCARNITINE [Concomitant]
     Dosage: 400 MG, DAILY
  14. FLECTOR [Suspect]
     Indication: MUSCLE TIGHTNESS
  15. NAPROXEN (ALEVE) [Suspect]
     Indication: PAIN
     Dosage: 220 MG, 2X/DAY
     Dates: start: 20120301, end: 20120406
  16. POTASSIUM CITRATE [Concomitant]
     Indication: PROPHYLAXIS
     Dosage: 15 MEQ, DAILY

REACTIONS (3)
  - SLEEP DISORDER [None]
  - MYALGIA [None]
  - MUSCLE SPASMS [None]
